FAERS Safety Report 10625728 (Version 2)
Quarter: 2014Q4

REPORT INFORMATION
  Report Type: Report from Study
  Country: JP (occurrence: JP)
  Receive Date: 20141204
  Receipt Date: 20141209
  Transmission Date: 20150529
  Serious: Yes (Death, Other)
  Sender: FDA-Public Use
  Company Number: JP-BAYER-2014-174616

PATIENT
  Age: 75 Year
  Sex: Male

DRUGS (1)
  1. SORAFENIB (RAF KINASE INHIBITOR) [Suspect]
     Active Substance: SORAFENIB
     Indication: HEPATOCELLULAR CARCINOMA
     Dosage: 400 MG, BID
     Route: 048
     Dates: start: 200905

REACTIONS (4)
  - Hepatic failure [Fatal]
  - Hepatic function abnormal [Recovering/Resolving]
  - Hepatic lesion [None]
  - Performance status decreased [Recovering/Resolving]
